FAERS Safety Report 4273299-2 (Version None)
Quarter: 2004Q1

REPORT INFORMATION
  Report Type: 
  Country: None (occurrence: None)
  Receive Date: 20040115
  Receipt Date: 20040115
  Transmission Date: 20041129
  Serious: Yes (Life-Threatening)
  Sender: FDA-Public Use
  Company Number: None

PATIENT
  Age: 53 Year
  Sex: Male
  Weight: 41 kg

DRUGS (2)
  1. ZYVOX [Suspect]
     Indication: GLYCOPEPTIDE ANTIBIOTIC RESISTANT ENTEROCOCCAL INFECTION
     Dosage: 600MG BID
     Dates: start: 20030706, end: 20030721
  2. SEPTRA [Suspect]
     Indication: STENOTROPHOMONAS INFECTION
     Dosage: 10 ML BID (IV)
     Route: 042
     Dates: start: 20030717, end: 20030721

REACTIONS (1)
  - PLATELET COUNT DECREASED [None]
